FAERS Safety Report 8781301 (Version 1)
Quarter: 2012Q4

REPORT INFORMATION
  Report Type: Report from Study
  Country: US (occurrence: US)
  Receive Date: 20120913
  Receipt Date: 20120913
  Transmission Date: 20130627
  Serious: No
  Sender: FDA-Public Use
  Company Number: US-VERTEX PHARMACEUTICAL INC.-AE-2012-007036

PATIENT
  Age: 69 Year
  Sex: Male

DRUGS (13)
  1. INCIVEK [Suspect]
     Indication: HEPATITIS C
     Route: 048
     Dates: start: 20120505
  2. PEGASYS [Concomitant]
     Indication: HEPATITIS C
     Dates: start: 20120505
  3. RIBAVIRIN [Concomitant]
     Indication: HEPATITIS C
     Dates: start: 20120505
  4. OMEPRAZOLE [Concomitant]
  5. IRON [Concomitant]
  6. ALLEGRA [Concomitant]
  7. ADVIR DISKU AER [Concomitant]
  8. PROAIR HFA AER [Concomitant]
  9. TIMOLOL GEL SOL [Concomitant]
  10. CELEXA [Concomitant]
  11. VITAMIN D [Concomitant]
  12. NADOLOL [Concomitant]
  13. PATANOL SOL [Concomitant]

REACTIONS (3)
  - Rash [Unknown]
  - Drug ineffective [Unknown]
  - Anal pruritus [Unknown]
